FAERS Safety Report 9223170 (Version 4)
Quarter: 2013Q2

REPORT INFORMATION
  Report Type: Spontaneous
  Country: CO (occurrence: CO)
  Receive Date: 20130410
  Receipt Date: 20130513
  Transmission Date: 20140414
  Serious: Yes (Other)
  Sender: FDA-Public Use
  Company Number: PHHY2013CO033600

PATIENT
  Age: 67 Year
  Sex: Female
  Weight: 58 kg

DRUGS (6)
  1. TEGRETOL [Suspect]
     Indication: CEREBRAL ISCHAEMIA
     Dosage: 5 DF (1 TAB AND HALF IN THE MORNING, 1 TAB AND HALF IN THE AFTERNOON, 2 TAB AT NIGHT), DAILY
     Route: 048
  2. TEGRETOL [Suspect]
     Indication: OFF LABEL USE
  3. CARBAMAZEPINE [Suspect]
     Dosage: UNK UKN, UNK
  4. SINALGEN [Concomitant]
     Dosage: UNK UKN, UNK
  5. CALCIUM CARBONATE [Concomitant]
     Dosage: UNK UKN, UNK
  6. DRUG THERAPY NOS [Concomitant]
     Dosage: UNK UKN, UNK

REACTIONS (4)
  - Cerebral ischaemia [Recovered/Resolved]
  - Headache [Recovered/Resolved]
  - Dizziness [Recovered/Resolved]
  - Malaise [Recovered/Resolved]
